FAERS Safety Report 5384096-9 (Version None)
Quarter: 2007Q3

REPORT INFORMATION
  Report Type: 
  Country: None (occurrence: None)
  Receive Date: 20070709
  Receipt Date: 20060623
  Transmission Date: 20080115
  Serious: Yes (Other)
  Sender: FDA-Public Use
  Company Number: US-2006-016524

PATIENT
  Age: 50 Year
  Sex: Male
  Weight: 113.4 kg

DRUGS (3)
  1. ULTRAVIST 300 [Suspect]
     Indication: COMPUTERISED TOMOGRAM ABDOMEN
     Dosage: 140 ML, 1 DOSE, INTRAVENOUS
     Route: 042
     Dates: start: 20060622, end: 20060622
  2. ULTRAVIST 300 [Suspect]
     Indication: COMPUTERISED TOMOGRAM THORAX
     Dosage: 140 ML, 1 DOSE, INTRAVENOUS
     Route: 042
     Dates: start: 20060622, end: 20060622
  3. HYDROCODONE (HYDROCODONE) [Concomitant]

REACTIONS (4)
  - FALL [None]
  - HEAD INJURY [None]
  - HEADACHE [None]
  - NAUSEA [None]
